FAERS Safety Report 9494131 (Version 1)
Quarter: 2013Q3

REPORT INFORMATION
  Report Type: Spontaneous
  Country: FR (occurrence: FR)
  Receive Date: 20130903
  Receipt Date: 20130903
  Transmission Date: 20140515
  Serious: Yes (Life-Threatening, Hospitalization)
  Sender: FDA-Public Use
  Company Number: PHHY2013FR095090

PATIENT
  Age: 12 Year
  Sex: Male

DRUGS (2)
  1. NEORAL [Suspect]
     Indication: BONE MARROW TRANSPLANT
     Dosage: 50 MG, BID
     Route: 048
     Dates: start: 201212, end: 20130513
  2. MABTHERA [Suspect]
     Indication: ACUTE MYELOID LEUKAEMIA
     Dosage: 485 MG, (1 DF IN ONE CYCLE)
     Dates: start: 201303, end: 20130405

REACTIONS (2)
  - Acute respiratory distress syndrome [Recovered/Resolved]
  - Pneumocystis jirovecii infection [Recovered/Resolved]
